FAERS Safety Report 5003911-1 (Version None)
Quarter: 2006Q2

REPORT INFORMATION
  Report Type: 
  Country: None (occurrence: None)
  Receive Date: 20060515
  Receipt Date: 20060427
  Transmission Date: 20061013
  Serious: No
  Sender: FDA-Public Use
  Company Number: VER_0011_2006

PATIENT
  Age: 24 Month
  Sex: Male
  Weight: 13.9 kg

DRUGS (1)
  1. EPINEPHRINE [Suspect]
     Indication: ANAPHYLACTIC REACTION
     Dosage: 1 DF ONCE SC
     Route: 058
     Dates: start: 20060424, end: 20060424

REACTIONS (3)
  - CIRCUMSTANCE OR INFORMATION CAPABLE OF LEADING TO MEDICATION ERROR [None]
  - MEDICAL DEVICE COMPLICATION [None]
  - WRONG TECHNIQUE IN DRUG USAGE PROCESS [None]
